FAERS Safety Report 22309228 (Version 1)
Quarter: 2023Q2

REPORT INFORMATION
  Report Type: Spontaneous
  Country: US (occurrence: None)
  Receive Date: 20230510
  Receipt Date: 20230510
  Transmission Date: 20230722
  Serious: No
  Sender: FDA-Public Use
  Company Number: None

PATIENT
  Age: 11 Year
  Sex: Male

DRUGS (1)
  1. ENBREL [Suspect]
     Active Substance: ETANERCEPT
     Route: 058
     Dates: start: 20230501, end: 20230501

REACTIONS (6)
  - Influenza like illness [None]
  - Nausea [None]
  - Abdominal pain upper [None]
  - Rash [None]
  - Eye pain [None]
  - Therapy cessation [None]

NARRATIVE: CASE EVENT DATE: 20230501
